FAERS Safety Report 8695018 (Version 6)
Quarter: 2024Q1

REPORT INFORMATION
  Report Type: Spontaneous
  Country: JP (occurrence: JP)
  Receive Date: 20120731
  Receipt Date: 20240314
  Transmission Date: 20240410
  Serious: Yes (Other)
  Sender: FDA-Public Use
  Company Number: JP-PFIZER INC-2012176845

PATIENT
  Age: 3 Year
  Sex: Male
  Weight: 17 kg

DRUGS (23)
  1. BENEFIX [Suspect]
     Active Substance: COAGULATION FACTOR IX RECOMBINANT HUMAN\ISOPROPYL ALCOHOL
     Indication: Factor IX deficiency
     Dosage: 2000 IU DAILY
     Route: 042
     Dates: start: 20120618, end: 20120618
  2. BENEFIX [Suspect]
     Active Substance: COAGULATION FACTOR IX RECOMBINANT HUMAN\ISOPROPYL ALCOHOL
     Indication: Immune tolerance induction
     Dosage: 2000 IU, 1X/DAY
     Dates: start: 20120625, end: 20120625
  3. BENEFIX [Suspect]
     Active Substance: COAGULATION FACTOR IX RECOMBINANT HUMAN\ISOPROPYL ALCOHOL
     Dosage: 2000 IU, 1X/DAY
     Dates: start: 20120703, end: 20120703
  4. BENEFIX [Suspect]
     Active Substance: COAGULATION FACTOR IX RECOMBINANT HUMAN\ISOPROPYL ALCOHOL
     Dosage: 2000 IU, 1X/DAY
     Dates: start: 20120709, end: 20120709
  5. BENEFIX [Suspect]
     Active Substance: COAGULATION FACTOR IX RECOMBINANT HUMAN\ISOPROPYL ALCOHOL
     Dosage: 2000 IU, 1X/DAY
     Dates: start: 20120717, end: 20120717
  6. BENEFIX [Suspect]
     Active Substance: COAGULATION FACTOR IX RECOMBINANT HUMAN\ISOPROPYL ALCOHOL
     Dosage: 9000 IU, 1X/DAY
     Dates: start: 20120723, end: 20120723
  7. BENEFIX [Suspect]
     Active Substance: COAGULATION FACTOR IX RECOMBINANT HUMAN\ISOPROPYL ALCOHOL
     Dosage: 3500 IU, 1X/DAY
     Dates: start: 20120724, end: 20120724
  8. BENEFIX [Suspect]
     Active Substance: COAGULATION FACTOR IX RECOMBINANT HUMAN\ISOPROPYL ALCOHOL
     Dosage: 2500 IU, 1X/DAY
     Dates: start: 20120725, end: 20120725
  9. BENEFIX [Suspect]
     Active Substance: COAGULATION FACTOR IX RECOMBINANT HUMAN\ISOPROPYL ALCOHOL
     Dosage: 3000 IU, 1X/DAY
     Dates: start: 20120726, end: 20120726
  10. BENEFIX [Suspect]
     Active Substance: COAGULATION FACTOR IX RECOMBINANT HUMAN\ISOPROPYL ALCOHOL
     Dosage: 3500 IU, 1X/DAY
     Dates: start: 20120727, end: 20120728
  11. BENEFIX [Suspect]
     Active Substance: COAGULATION FACTOR IX RECOMBINANT HUMAN\ISOPROPYL ALCOHOL
     Dosage: 3000 IU, 1X/DAY
     Dates: start: 20120729, end: 20120729
  12. BENEFIX [Suspect]
     Active Substance: COAGULATION FACTOR IX RECOMBINANT HUMAN\ISOPROPYL ALCOHOL
     Dosage: 3500 IU, 1X/DAY
     Dates: start: 20120730, end: 20120730
  13. BENEFIX [Suspect]
     Active Substance: COAGULATION FACTOR IX RECOMBINANT HUMAN\ISOPROPYL ALCOHOL
     Dosage: 4500 IU, 1X/DAY
     Dates: start: 20120731, end: 20120801
  14. BENEFIX [Suspect]
     Active Substance: COAGULATION FACTOR IX RECOMBINANT HUMAN\ISOPROPYL ALCOHOL
     Dosage: 3500 IU, 1X/DAY
     Dates: start: 20120802, end: 20120802
  15. BENEFIX [Suspect]
     Active Substance: COAGULATION FACTOR IX RECOMBINANT HUMAN\ISOPROPYL ALCOHOL
     Dosage: 3000 IU, 1X/DAY
     Dates: start: 20120803, end: 20120803
  16. BENEFIX [Suspect]
     Active Substance: COAGULATION FACTOR IX RECOMBINANT HUMAN\ISOPROPYL ALCOHOL
     Dosage: 2000 IU, 1X/DAY
     Dates: start: 20120804, end: 20120806
  17. BENEFIX [Suspect]
     Active Substance: COAGULATION FACTOR IX RECOMBINANT HUMAN\ISOPROPYL ALCOHOL
     Dosage: 2000 IU, 1X/DAY
     Dates: start: 20120828, end: 20120828
  18. BENEFIX [Suspect]
     Active Substance: COAGULATION FACTOR IX RECOMBINANT HUMAN\ISOPROPYL ALCOHOL
     Dosage: 2000 IU, 1X/DAY
     Dates: start: 20120904
  19. FACTOR IX COMPLEX [Suspect]
     Active Substance: FACTOR IX COMPLEX
     Indication: Haemostasis
     Dosage: 800 IU, AS NEEDED
     Route: 042
     Dates: start: 20090515, end: 20120120
  20. MYSTAN [Concomitant]
     Active Substance: CLOBAZAM
     Indication: Epilepsy
     Dosage: 3 MG, 2X/DAY
     Route: 048
     Dates: start: 20101220
  21. TOPIRAMATE [Concomitant]
     Active Substance: TOPIRAMATE
     Indication: Epilepsy
     Dosage: 50 MG, 2X/DAY
     Route: 048
     Dates: start: 20110927
  22. DEPAKENE [Concomitant]
     Active Substance: VALPROIC ACID
     Indication: Epilepsy
     Dosage: 100 MG, 2X/DAY
     Route: 048
     Dates: start: 20111221
  23. LAMICTAL [Concomitant]
     Active Substance: LAMOTRIGINE
     Indication: Epilepsy
     Dosage: 6 MG, 2X/DAY
     Route: 048
     Dates: start: 20120306

REACTIONS (3)
  - Factor IX inhibition [Not Recovered/Not Resolved]
  - Anaphylactoid reaction [Recovered/Resolved]
  - Off label use [Unknown]

NARRATIVE: CASE EVENT DATE: 20120717
